FAERS Safety Report 8009236-4 (Version None)
Quarter: 2011Q4

REPORT INFORMATION
  Report Type: 
  Country: None (occurrence: None)
  Receive Date: 20111221
  Receipt Date: 20111209
  Transmission Date: 20120403
  Serious: Yes (Death, Hospitalization)
  Sender: FDA-Public Use
  Company Number: 1000023886

PATIENT
  Age: 91 Year
  Sex: Male

DRUGS (12)
  1. SOTALOL HCL [Suspect]
     Dosage: 320 MG (160 MG,2 IN 1 D),ORAL
     Route: 048
  2. ASPIRIN [Suspect]
     Dosage: 10 MG (10 MG,1 IN 1 D),ORAL
     Route: 048
  3. AMLODIPINE [Suspect]
     Indication: BLOOD PRESSURE
     Dosage: 5 MG (5 MG,1 IN 1 D),ORAL
     Route: 048
  4. MEMANTINE HYDROCHLORIDE [Suspect]
     Dosage: 20 MG DAILY (10 MG,2 IN 1 D),ORAL
     Route: 048
     Dates: start: 20101015
  5. OMEPRAZOLE [Suspect]
     Indication: GASTROOESOPHAGEAL REFLUX DISEASE
     Dosage: 40 MG (20 MG,2 IN 1 D),ORAL
     Route: 048
  6. GLICLAZIDE (GLICLAZIDE) (TABLETS) [Suspect]
     Indication: TYPE 2 DIABETES MELLITUS
     Dosage: 60 MG (30 MG,2 IN 1 D),ORAL
     Route: 048
  7. DIAZEPAM [Suspect]
     Dosage: 5 MG DAILY PRN (5 MG,1 IN 1 D),ORAL
     Route: 048
  8. ISOSORBIDE (ISOSORBIDE) (TABLETS) [Suspect]
     Dosage: 120 MG (120 MG,1 IN 1 D),ORAL
     Route: 048
  9. ACETAMINOPHEN [Suspect]
     Indication: PAIN
     Dosage: 4000 MG (500 MG,8 IN 1 D),ORAL
     Route: 048
  10. NITROGLYCERIN [Suspect]
     Indication: ANGINA PECTORIS
     Dosage: 600 MG (600 MG,1 IN 1 D),ORAL
     Route: 048
  11. THIORIDAZINE HCL [Suspect]
     Indication: MENIERE'S DISEASE
     Dosage: 32 MG (16 MG,2 IN 1 D),ORAL
     Route: 048
  12. FUROSEMIDE [Suspect]
     Indication: DIURETIC THERAPY
     Dosage: 20 MG (20 MG,1 IN 1 D),ORAL
     Route: 048

REACTIONS (1)
  - NEOPLASM MALIGNANT [None]
